FAERS Safety Report 19232370 (Version 2)
Quarter: 2022Q2

REPORT INFORMATION
  Report Type: Spontaneous
  Country: CA (occurrence: None)
  Receive Date: 20210507
  Receipt Date: 20220408
  Transmission Date: 20220721
  Serious: Yes (Other)
  Sender: FDA-Public Use
  Company Number: 2021A378249

PATIENT
  Age: 66 Year
  Sex: Male

DRUGS (14)
  1. BRILINTA [Suspect]
     Active Substance: TICAGRELOR
     Indication: Product used for unknown indication
     Dosage: UNK
     Route: 048
     Dates: start: 202005, end: 20200917
  2. EVOLOCUMAB [Suspect]
     Active Substance: EVOLOCUMAB
     Indication: Low density lipoprotein increased
     Route: 065
  3. EVOLOCUMAB [Suspect]
     Active Substance: EVOLOCUMAB
     Indication: Hyperlipidaemia
     Route: 065
  4. EVOLOCUMAB [Suspect]
     Active Substance: EVOLOCUMAB
     Indication: Arteriosclerosis
     Route: 065
  5. EVOLOCUMAB [Suspect]
     Active Substance: EVOLOCUMAB
     Indication: Low density lipoprotein increased
     Dosage: 1 EVERY TO WEEKS, 140 MILLIGRAM PER MILLILITRE
     Route: 065
  6. EVOLOCUMAB [Suspect]
     Active Substance: EVOLOCUMAB
     Indication: Hyperlipidaemia
     Dosage: 1 EVERY TO WEEKS, 140 MILLIGRAM PER MILLILITRE
     Route: 065
  7. EVOLOCUMAB [Suspect]
     Active Substance: EVOLOCUMAB
     Indication: Arteriosclerosis
     Dosage: 1 EVERY TO WEEKS, 140 MILLIGRAM PER MILLILITRE
     Route: 065
  8. EVOLOCUMAB [Suspect]
     Active Substance: EVOLOCUMAB
     Indication: Low density lipoprotein increased
     Route: 065
  9. EVOLOCUMAB [Suspect]
     Active Substance: EVOLOCUMAB
     Indication: Hyperlipidaemia
     Route: 065
  10. EVOLOCUMAB [Suspect]
     Active Substance: EVOLOCUMAB
     Indication: Arteriosclerosis
     Route: 065
  11. PANTOPRAZOLE [Concomitant]
     Active Substance: PANTOPRAZOLE
  12. ROSUVASTATIN CALCIUM [Concomitant]
     Active Substance: ROSUVASTATIN CALCIUM
  13. BISOPROLOL [Concomitant]
     Active Substance: BISOPROLOL
  14. ASPIRIN [Concomitant]
     Active Substance: ASPIRIN

REACTIONS (3)
  - Coronary arterial stent insertion [Unknown]
  - Transplant failure [Unknown]
  - Dizziness [Recovered/Resolved]

NARRATIVE: CASE EVENT DATE: 20200801
